FAERS Safety Report 14765839 (Version 13)
Quarter: 2019Q1

REPORT INFORMATION
  Report Type: Report from Study
  Country: US (occurrence: US)
  Receive Date: 20180416
  Receipt Date: 20190320
  Transmission Date: 20190417
  Serious: Yes (Death, Hospitalization, Disabling)
  Sender: FDA-Public Use
  Company Number: US-ACTELION-A-US2018-170135

PATIENT
  Age: 65 Year
  Sex: Male

DRUGS (3)
  1. REVATIO [Concomitant]
     Active Substance: SILDENAFIL CITRATE
     Dosage: 20 MG, TID
  2. UPTRAVI [Concomitant]
     Active Substance: SELEXIPAG
     Indication: PULMONARY ARTERIAL HYPERTENSION
     Dosage: UNK
     Route: 048
     Dates: start: 20190103
  3. OPSUMIT [Suspect]
     Active Substance: MACITENTAN
     Indication: PULMONARY ARTERIAL HYPERTENSION
     Dosage: 10 MG, QD
     Route: 048
     Dates: start: 20180326

REACTIONS (19)
  - Dyspnoea [Not Recovered/Not Resolved]
  - Feeling abnormal [Unknown]
  - Oedema [Unknown]
  - Gait disturbance [Unknown]
  - Pneumothorax [Recovered/Resolved]
  - Pleural infection [Recovered/Resolved]
  - Respiratory distress [Not Recovered/Not Resolved]
  - Fall [Recovered/Resolved]
  - Debridement [Recovered/Resolved]
  - Death [Fatal]
  - Upper limb fracture [Recovered/Resolved]
  - Open reduction of fracture [Recovered/Resolved]
  - Malaise [Recovered/Resolved]
  - Lung operation [Recovered/Resolved]
  - Peripheral swelling [Unknown]
  - Hypotension [Not Recovered/Not Resolved]
  - Adverse event [Not Recovered/Not Resolved]
  - Dialysis [Unknown]
  - Hospitalisation [Unknown]

NARRATIVE: CASE EVENT DATE: 20181213
